FAERS Safety Report 13501346 (Version 1)
Quarter: 2017Q2

REPORT INFORMATION
  Report Type: Spontaneous
  Country: US (occurrence: US)
  Receive Date: 20170501
  Receipt Date: 20170501
  Transmission Date: 20170830
  Serious: No
  Sender: FDA-Public Use
  Company Number: US-ROCHE-1895140

PATIENT
  Age: 72 Year
  Sex: Male
  Weight: 92.62 kg

DRUGS (3)
  1. OFEV [Concomitant]
     Active Substance: NINTEDANIB
  2. TAMIFLU [Suspect]
     Active Substance: OSELTAMIVIR PHOSPHATE
     Indication: INFLUENZA LIKE ILLNESS
     Dosage: YES
     Route: 048
     Dates: start: 20170215
  3. ESBRIET [Suspect]
     Active Substance: PIRFENIDONE
     Indication: IDIOPATHIC PULMONARY FIBROSIS
     Dosage: ONE PILL THREE TIMES PER DAY ;ONGOING: NO
     Route: 048
     Dates: start: 20170211, end: 20170215

REACTIONS (3)
  - Influenza like illness [Recovered/Resolved]
  - Cough [Recovering/Resolving]
  - Incoherent [Recovered/Resolved]

NARRATIVE: CASE EVENT DATE: 20170214
